FAERS Safety Report 24934128 (Version 1)
Quarter: 2025Q1

REPORT INFORMATION
  Report Type: Report from Study
  Country: CA (occurrence: CA)
  Receive Date: 20250206
  Receipt Date: 20250206
  Transmission Date: 20250409
  Serious: Yes (Other)
  Sender: EXELIXIS
  Company Number: CA-IPSEN Group, Research and Development-2024-11739

PATIENT
  Sex: Male

DRUGS (21)
  1. CABOMETYX [Suspect]
     Active Substance: CABOZANTINIB S-MALATE
     Indication: Poorly differentiated thyroid carcinoma
     Dosage: 40 MG, QD
     Route: 065
     Dates: start: 20240318
  2. CABOMETYX [Suspect]
     Active Substance: CABOZANTINIB S-MALATE
     Dosage: 60 MG, QD
     Route: 065
  3. HYDROMORPHONE [Concomitant]
     Active Substance: HYDROMORPHONE
  4. HYDROMORPHONE [Concomitant]
     Active Substance: HYDROMORPHONE
  5. PREGABALIN [Concomitant]
     Active Substance: PREGABALIN
  6. INDAPAMIDE [Concomitant]
     Active Substance: INDAPAMIDE
  7. CALCIUM [Concomitant]
     Active Substance: CALCIUM
  8. PERINDOPRIL [Concomitant]
     Active Substance: PERINDOPRIL
  9. PRIMIDONE [Concomitant]
     Active Substance: PRIMIDONE
  10. PRIMIDONE [Concomitant]
     Active Substance: PRIMIDONE
  11. AMLODIPINE [Concomitant]
     Active Substance: AMLODIPINE BESYLATE
  12. Pranol [Concomitant]
  13. DULOXETINE [Concomitant]
     Active Substance: DULOXETINE
  14. SYNTHROID [Concomitant]
     Active Substance: LEVOTHYROXINE SODIUM
  15. SYNTHROID [Concomitant]
     Active Substance: LEVOTHYROXINE SODIUM
  16. DOXAZOSIN [Concomitant]
     Active Substance: DOXAZOSIN MESYLATE
  17. APIXABAN [Concomitant]
     Active Substance: APIXABAN
  18. POLYETHYLENE GLYCOL 3350 [Concomitant]
     Active Substance: POLYETHYLENE GLYCOL 3350
  19. ALBUTEROL [Concomitant]
     Active Substance: ALBUTEROL
  20. ZOLEDRONIC ACID [Concomitant]
     Active Substance: ZOLEDRONIC ACID
  21. ACETAMINOPHEN [Concomitant]
     Active Substance: ACETAMINOPHEN

REACTIONS (1)
  - Malignant neoplasm progression [Unknown]
